FAERS Safety Report 10080923 (Version 1)
Quarter: 2014Q2

REPORT INFORMATION
  Report Type: Spontaneous
  Country: FR (occurrence: FR)
  Receive Date: 20140416
  Receipt Date: 20140416
  Transmission Date: 20141212
  Serious: Yes (Hospitalization)
  Sender: FDA-Public Use
  Company Number: FR-ELI_LILLY_AND_COMPANY-FR201404001855

PATIENT
  Age: 67 Year
  Sex: Male

DRUGS (4)
  1. GEMZAR [Suspect]
     Indication: BRONCHIAL CARCINOMA
     Dosage: UNK
     Route: 042
     Dates: start: 20140218
  2. INEXIUM                            /01479302/ [Concomitant]
     Dosage: 40 MG, QD
     Dates: start: 201310
  3. AVODART [Concomitant]
     Dosage: 0.5 MG, QD
     Dates: start: 2012
  4. UROREC [Concomitant]
     Dosage: 4 MG, QD
     Dates: start: 2012

REACTIONS (3)
  - Pruritus [Recovering/Resolving]
  - Dyspnoea [Unknown]
  - Productive cough [Unknown]
